FAERS Safety Report 8243555-1 (Version None)
Quarter: 2012Q1

REPORT INFORMATION
  Report Type: 
  Country: None (occurrence: None)
  Receive Date: 20120329
  Receipt Date: 20120327
  Transmission Date: 20120608
  Serious: Yes (Death, Hospitalization)
  Sender: FDA-Public Use
  Company Number: PHFR2011GB006694

PATIENT
  Sex: Male

DRUGS (5)
  1. ORAMORPH SR [Concomitant]
  2. ZOLEDRONOC ACID [Suspect]
     Dosage: QMO
     Route: 042
     Dates: start: 20110509, end: 20110531
  3. AFINITOR [Suspect]
     Dosage: 10 MG, UNK
     Route: 048
     Dates: start: 20110509, end: 20110607
  4. MORPHINE [Concomitant]
     Route: 048
  5. GABAPENTIN [Concomitant]

REACTIONS (8)
  - RENAL IMPAIRMENT [None]
  - NEOPLASM PROGRESSION [None]
  - TOXICITY TO VARIOUS AGENTS [None]
  - CONFUSIONAL STATE [None]
  - METASTASES TO BONE [None]
  - RENAL FAILURE ACUTE [None]
  - NEOPLASM MALIGNANT [None]
  - METASTASES TO LIVER [None]
